FAERS Safety Report 22352073 (Version 8)
Quarter: 2024Q3

REPORT INFORMATION
  Report Type: Spontaneous
  Country: US (occurrence: US)
  Receive Date: 20230522
  Receipt Date: 20240812
  Transmission Date: 20241017
  Serious: Yes (Hospitalization, Other)
  Sender: PFIZER
  Company Number: US-PFIZER INC-202300194111

PATIENT
  Age: 12 Year
  Sex: Male
  Weight: 32.66 kg

DRUGS (6)
  1. OXBRYTA [Suspect]
     Active Substance: VOXELOTOR
     Indication: Sickle cell anaemia
     Dosage: 300 MG TABLETS, 3 TABLETS DAILY
     Route: 048
     Dates: start: 20230507, end: 20230507
  2. OXBRYTA [Suspect]
     Active Substance: VOXELOTOR
     Dosage: 600 MG, 1X/DAY, (DOSE LOWERED TO 2 TABS)
  3. OXBRYTA [Suspect]
     Active Substance: VOXELOTOR
     Dosage: TITRATING MEDICATION EVERY 2 WEEK FROM 1 TABLET TO CURRENT DOSE OF 3 TABLETS DAILY
  4. OXBRYTA [Suspect]
     Active Substance: VOXELOTOR
     Dosage: 300 MG, 3 TABLETS DAILY
     Route: 048
  5. OXBRYTA [Suspect]
     Active Substance: VOXELOTOR
     Dosage: 300 MG TABLET, THREE TABLETS BY MOUTH DAILY
     Route: 048
  6. OXBRYTA [Suspect]
     Active Substance: VOXELOTOR
     Dosage: 500MG 3 TABLETS ONCE DAILY, ORALLY
     Route: 048
     Dates: start: 202305

REACTIONS (12)
  - Cholelithiasis [Unknown]
  - Sickle cell anaemia with crisis [Unknown]
  - Swelling face [Unknown]
  - Diarrhoea [Not Recovered/Not Resolved]
  - Chills [Unknown]
  - Pyrexia [Not Recovered/Not Resolved]
  - Rash [Unknown]
  - Illness [Unknown]
  - Haemoglobin increased [Unknown]
  - Peripheral vascular disorder [Unknown]
  - Bacterial infection [Unknown]
  - Off label use [Unknown]

NARRATIVE: CASE EVENT DATE: 20230511
